FAERS Safety Report 5320650-8 (Version None)
Quarter: 2007Q2

REPORT INFORMATION
  Report Type: 
  Country: None (occurrence: None)
  Receive Date: 20070509
  Receipt Date: 20070427
  Transmission Date: 20071010
  Serious: Yes (Hospitalization, Other)
  Sender: FDA-Public Use
  Company Number: FR-PFIZER INC-2007024638

PATIENT
  Sex: Male
  Weight: 85 kg

DRUGS (5)
  1. CELEBREX [Suspect]
     Indication: OSTEOARTHRITIS
  2. KARDEGIC [Interacting]
     Indication: ARTERITIS CORONARY
  3. DEXTROPROPOXYPHENE HYDROCHLORIDE [Concomitant]
  4. SIMVASTATIN [Concomitant]
  5. PLAVIX [Concomitant]

REACTIONS (4)
  - ANAEMIA [None]
  - DRUG INTERACTION [None]
  - GASTROINTESTINAL HAEMORRHAGE [None]
  - MELAENA [None]
